FAERS Safety Report 15821961 (Version 1)
Quarter: 2019Q1

REPORT INFORMATION
  Report Type: Report from Study
  Country: US (occurrence: US)
  Receive Date: 20190114
  Receipt Date: 20190114
  Transmission Date: 20190417
  Serious: No
  Sender: FDA-Public Use
  Company Number: US-VANDA PHARMACEUTICALS, INC-2018TASUS002417

PATIENT
  Age: 46 Year
  Sex: Male
  Weight: 113.38 kg

DRUGS (5)
  1. MELATONIN [Concomitant]
     Active Substance: MELATONIN
     Indication: PRODUCT USED FOR UNKNOWN INDICATION
     Dosage: 2.5 MG, UNK
  2. CHLORZOXAZONE. [Concomitant]
     Active Substance: CHLORZOXAZONE
     Indication: MUSCLE RELAXANT THERAPY
     Dosage: 500 MG, QID OR PARAFON FORTE
     Route: 048
  3. HALCION [Concomitant]
     Active Substance: TRIAZOLAM
     Indication: PRODUCT USED FOR UNKNOWN INDICATION
  4. HETLIOZ [Suspect]
     Active Substance: TASIMELTEON
     Indication: NON-24-HOUR SLEEP-WAKE DISORDER
     Dosage: 20 MG, DAILY
     Route: 048
     Dates: start: 201806
  5. KLONOPIN [Concomitant]
     Active Substance: CLONAZEPAM
     Indication: PRODUCT USED FOR UNKNOWN INDICATION
     Dosage: UNK

REACTIONS (6)
  - Memory impairment [Unknown]
  - Nightmare [Not Recovered/Not Resolved]
  - Muscle spasms [Unknown]
  - Sleep talking [Unknown]
  - Confusional state [Unknown]
  - Abnormal sleep-related event [Unknown]

NARRATIVE: CASE EVENT DATE: 20180726
